FAERS Safety Report 9134746 (Version 3)
Quarter: 2013Q2

REPORT INFORMATION
  Report Type: Spontaneous
  Country: US (occurrence: US)
  Receive Date: 20130304
  Receipt Date: 20130527
  Transmission Date: 20140414
  Serious: No
  Sender: FDA-Public Use
  Company Number: US-PFIZER INC-2013069413

PATIENT
  Age: 61 Year
  Sex: Male

DRUGS (7)
  1. VIAGRA [Suspect]
     Dosage: UNK
  2. RANITIDINE [Concomitant]
     Dosage: 150 MG, UNK
  3. CHLORTHALIDONE [Concomitant]
     Dosage: 25 MG, UNK
  4. AZOR [Concomitant]
     Dosage: 5-40 MG, UNK
  5. CRESTOR [Concomitant]
     Dosage: 20 MG, UNK
  6. ASPIRIN [Concomitant]
     Dosage: 81 MG, UNK
  7. VITAMIN A [Concomitant]
     Dosage: DAILY

REACTIONS (1)
  - Drug ineffective [Unknown]
